FAERS Safety Report 8943132 (Version 1)
Quarter: 2012Q4

REPORT INFORMATION
  Report Type: 
  Country: US (occurrence: US)
  Receive Date: 20121204
  Receipt Date: 20121204
  Transmission Date: 20130627
  Serious: No
  Sender: FDA-Public Use
  Company Number: US-BAYER-2012-118891

PATIENT
  Age: 52 Year
  Sex: Female
  Weight: 126.53 kg

DRUGS (21)
  1. BETASERON [Suspect]
     Dosage: 0.25 mg, QOD
     Route: 058
  2. CYMBALTA [Concomitant]
  3. KLONOPIN [Concomitant]
  4. JANUVIA [Concomitant]
  5. ZOCOR [Concomitant]
  6. ALDACTONE [POTASSIUM CANRENOATE] [Concomitant]
  7. LASIX [Concomitant]
  8. SYNTHROID [Concomitant]
  9. BACLOFEN [Concomitant]
  10. WELLBUTRIN XL [Concomitant]
  11. TOPROL XL [Concomitant]
  12. NEXIUM [Concomitant]
  13. KEFLEX [Concomitant]
  14. ACIDOPHILUS [Concomitant]
  15. VITAMIN B12 [Concomitant]
  16. ZONEGRAN [Concomitant]
  17. VITAMIN C [Concomitant]
  18. VYVANSE [Concomitant]
  19. CRANBERRY [Concomitant]
  20. POTASSIUM CHLORIDE [Concomitant]
  21. METFORMIN ER [Concomitant]
     Dosage: UNK

REACTIONS (2)
  - Injection site mass [Unknown]
  - Injection site atrophy [Unknown]
